FAERS Safety Report 6639840-7 (Version None)
Quarter: 2010Q1

REPORT INFORMATION
  Report Type: 
  Country: None (occurrence: None)
  Receive Date: 20100318
  Receipt Date: 20100311
  Transmission Date: 20100710
  Serious: Yes (Hospitalization)
  Sender: FDA-Public Use
  Company Number: US-BRISTOL-MYERS SQUIBB COMPANY-14587034

PATIENT
  Age: 76 Year
  Sex: Male
  Weight: 89 kg

DRUGS (12)
  1. CARBOPLATIN [Suspect]
     Indication: NON-SMALL CELL LUNG CANCER
     Dosage: 4TH CYCLE ON 14APR09 ON D1.
     Route: 042
     Dates: start: 20090106
  2. PACLITAXEL [Suspect]
     Indication: NON-SMALL CELL LUNG CANCER
     Route: 042
     Dates: start: 20090106, end: 20090218
  3. CP-751,871 [Suspect]
     Indication: NON-SMALL CELL LUNG CANCER
     Dosage: 4TH CYCLE ON 14APR09 ON D1.
     Route: 042
     Dates: start: 20090106
  4. ACETYLSALICYLIC ACID SRT [Concomitant]
  5. ATENOLOL [Concomitant]
     Indication: HYPERTENSION
     Dates: start: 19960601
  6. CRESTOR [Concomitant]
     Indication: HYPERCHOLESTEROLAEMIA
     Dates: start: 20060801
  7. GLIPIZIDE [Concomitant]
     Indication: DIABETES MELLITUS
     Dates: start: 20000301
  8. LISINOPRIL [Concomitant]
     Indication: HYPERTENSION
     Dates: start: 20090101
  9. METFORMIN HYDROCHLORIDE [Concomitant]
     Dates: start: 20031101
  10. ZYRTEC [Concomitant]
     Dates: start: 20080501
  11. PHENERGAN HCL [Concomitant]
     Dates: start: 20090105
  12. PRILOSEC [Concomitant]
     Dates: start: 20000301

REACTIONS (1)
  - HYPONATRAEMIA [None]
